FAERS Safety Report 12459013 (Version 2)
Quarter: 2016Q3

REPORT INFORMATION
  Report Type: Spontaneous
  Country: JP (occurrence: JP)
  Receive Date: 20160613
  Receipt Date: 20160707
  Transmission Date: 20161109
  Serious: Yes (Hospitalization)
  Sender: FDA-Public Use
  Company Number: JP-ROCHE-1774619

PATIENT
  Age: 68 Year
  Sex: Female

DRUGS (5)
  1. INTAL [Concomitant]
     Active Substance: CROMOLYN SODIUM
     Dosage: DOSAGE IS UNCERTAIN.
     Route: 047
  2. ACTEMRA [Suspect]
     Active Substance: TOCILIZUMAB
     Indication: RHEUMATOID ARTHRITIS
     Route: 041
  3. PROMAC (JAPAN) [Concomitant]
     Dosage: DOSAGE IS UNCERTAIN.
     Route: 048
  4. NEXIUM [Concomitant]
     Active Substance: ESOMEPRAZOLE MAGNESIUM
     Dosage: DOSAGE IS UNCERTAIN.
     Route: 065
  5. MOHRUS TAPE [Concomitant]
     Active Substance: KETOPROFEN
     Dosage: DOSAGE IS UNCERTAIN.
     Route: 061

REACTIONS (1)
  - Pleural effusion [Not Recovered/Not Resolved]

NARRATIVE: CASE EVENT DATE: 20160328
